FAERS Safety Report 18100149 (Version 1)
Quarter: 2020Q3

REPORT INFORMATION
  Report Type: Spontaneous
  Country: GB (occurrence: GB)
  Receive Date: 20200731
  Receipt Date: 20200731
  Transmission Date: 20201103
  Serious: Yes (Disabling)
  Sender: FDA-Public Use
  Company Number: GB-PURDUE-USA-2020-0160135

PATIENT
  Age: 77 Year
  Sex: Female
  Weight: 51 kg

DRUGS (7)
  1. PREDNISOLONE. [Concomitant]
     Active Substance: PREDNISOLONE
     Indication: PRODUCT USED FOR UNKNOWN INDICATION
     Dosage: 30 MG, DAILY
     Route: 065
     Dates: start: 20200424, end: 20200606
  2. BUTEC [Suspect]
     Active Substance: BUPRENORPHINE
     Indication: PRODUCT USED FOR UNKNOWN INDICATION
     Dosage: 5 MCG, Q1H (STRENGTH 5 MG) (1 PATCH EACH WEEK. REMOVE OLD PATCH BEFORE APPLYING NEW PATCH)
     Route: 062
     Dates: start: 20200526, end: 20200612
  3. COCODAMOL [Concomitant]
     Active Substance: ACETAMINOPHEN\CODEINE PHOSPHATE
     Indication: PAIN
     Dosage: UNK (ONE OR TWO TO BE TAKEN FOUR TIMES A DAY. 15MG/500MG, 30MG/500MG)
     Route: 065
     Dates: start: 20200424
  4. GABAPENTIN. [Concomitant]
     Active Substance: GABAPENTIN
     Indication: BACK PAIN
     Dosage: 1200 MG, DAILY
     Route: 065
     Dates: start: 20200511
  5. ACIDEX [Concomitant]
     Active Substance: CALCIUM CARBONATE\SODIUM ALGINATE\SODIUM BICARBONATE
     Indication: DYSPEPSIA
     Dosage: UNK (10?20ML TO BE TAKEN AFTER MEALS AND AT BEDTIME ? FOR FLARE?UPS OF ACID INDIGESTION)
     Route: 065
     Dates: start: 20200511, end: 20200623
  6. CASSIA [Concomitant]
     Indication: CONSTIPATION
     Dosage: UNK (ONE OR TWO TO BE TAKEN ONCE DAILY IN THE EVENING.)
     Route: 065
     Dates: start: 20200601
  7. LANSOPRAZOLE. [Concomitant]
     Active Substance: LANSOPRAZOLE
     Indication: DYSPEPSIA
     Dosage: 15 MG, DAILY (EACH MORNING. TO PROTECT STOMACH FROM ASPIRIN AND CITALOPRAM)
     Route: 065
     Dates: start: 20200511

REACTIONS (5)
  - Suicidal ideation [Not Recovered/Not Resolved]
  - Restlessness [Not Recovered/Not Resolved]
  - Panic attack [Recovered/Resolved]
  - Agitation [Not Recovered/Not Resolved]
  - Dry mouth [Recovering/Resolving]

NARRATIVE: CASE EVENT DATE: 20200608
